FAERS Safety Report 9582405 (Version 1)
Quarter: 2013Q4

REPORT INFORMATION
  Report Type: Spontaneous
  Country: US (occurrence: US)
  Receive Date: 20131002
  Receipt Date: 20131002
  Transmission Date: 20140711
  Serious: No
  Sender: FDA-Public Use
  Company Number: US-AMGEN-USASP2013040222

PATIENT
  Age: 65 Year
  Sex: Male

DRUGS (9)
  1. ENBREL [Suspect]
     Indication: PRODUCT USED FOR UNKNOWN INDICATION
     Dosage: 50 MG, QWK
     Route: 058
  2. CELEBREX [Concomitant]
     Dosage: 100 MG, UNK
  3. SALAGEN [Concomitant]
     Dosage: 7.5 MG, UNK
  4. EFFEXOR [Concomitant]
     Dosage: 75 MG, UNK
  5. TRICOR                             /00499301/ [Concomitant]
     Dosage: 48 MG, UNK
  6. ZOCOR [Concomitant]
     Dosage: 10 MG, UNK
  7. LISINOPRIL [Concomitant]
     Dosage: 5 MG, UNK
  8. TEMAZEPAM [Concomitant]
     Dosage: 15 MG, UNK
  9. VICODIN HP [Concomitant]
     Dosage: 10-660 MG

REACTIONS (1)
  - Drug ineffective [Unknown]
